FAERS Safety Report 8465224-5 (Version None)
Quarter: 2012Q2

REPORT INFORMATION
  Report Type: 
  Country: None (occurrence: None)
  Receive Date: 20120626
  Receipt Date: 20120615
  Transmission Date: 20120825
  Serious: Yes (Death, Hospitalization)
  Sender: FDA-Public Use
  Company Number: DE-BRISTOL-MYERS SQUIBB COMPANY-15803117

PATIENT
  Age: 77 Year
  Sex: Male
  Weight: 85 kg

DRUGS (23)
  1. FRAXIPARINE [Concomitant]
     Dates: start: 20110302
  2. ZOMETA [Concomitant]
     Dates: start: 20110107
  3. ALDACTONE [Concomitant]
     Dates: start: 20110226
  4. SIMVASTATIN [Concomitant]
     Dates: end: 20110313
  5. CITALOPRAM HYDROBROMIDE [Concomitant]
     Dates: start: 20110222, end: 20110315
  6. SODIUM CHLORIDE [Concomitant]
     Dates: start: 20110314
  7. CONCOR PLUS [Concomitant]
     Dates: end: 20110315
  8. FOLIC ACID [Concomitant]
     Dates: start: 20110107, end: 20110118
  9. PANTOPRAZOLE [Concomitant]
     Dates: start: 20110219, end: 20110315
  10. ALIMTA [Suspect]
     Indication: NON-SMALL CELL LUNG CANCER STAGE IV
     Dosage: LAST RECEIVED ON 08MAR2011
     Route: 065
     Dates: start: 20110114
  11. AMLODIPINE [Concomitant]
     Dates: end: 20110307
  12. CALCIUM CARBONATE + CALCIUM GLUBIONATE [Concomitant]
     Dates: start: 20110304
  13. CONCENTRATED RED BLOOD CELLS [Concomitant]
     Dates: start: 20110309, end: 20110309
  14. CALCIUM GLUCONATE [Concomitant]
     Dates: start: 20110304
  15. NECITUMUMAB [Suspect]
     Indication: NON-SMALL CELL LUNG CANCER STAGE IV
     Dosage: LAST RECEIVED ON 20JAN2011
     Route: 065
     Dates: start: 20110114
  16. XIMOVAN [Concomitant]
  17. CALCICHEW D3 [Concomitant]
  18. NOVALGIN [Concomitant]
     Dates: start: 20110107, end: 20110309
  19. TORSEMIDE [Concomitant]
     Dates: start: 20110226, end: 20110313
  20. CISPLATIN [Suspect]
     Indication: NON-SMALL CELL LUNG CANCER STAGE IV
     Dosage: LAST RECEIVED ON 08MAR2011
     Route: 065
     Dates: start: 20110114
  21. VITAMIN B-12 [Concomitant]
     Dates: start: 20110107
  22. POTASSIUM CHLORIDE [Concomitant]
     Dates: start: 20110314
  23. ARIXTRA [Concomitant]
     Dates: start: 20110305, end: 20110309

REACTIONS (2)
  - NEUTROPENIC SEPSIS [None]
  - MULTI-ORGAN FAILURE [None]
